FAERS Safety Report 6181425-3 (Version None)
Quarter: 2009Q2

REPORT INFORMATION
  Report Type: 
  Country: None (occurrence: None)
  Receive Date: 20090505
  Receipt Date: 20090505
  Transmission Date: 20091009
  Serious: Yes (Life-Threatening)
  Sender: FDA-Public Use
  Company Number: None

PATIENT
  Age: 58 Year
  Sex: Male
  Weight: 79.3795 kg

DRUGS (1)
  1. CHANTIX [Suspect]
     Indication: SMOKING CESSATION THERAPY
     Dosage: 5 MG DAILY
     Dates: start: 20081201

REACTIONS (3)
  - IMPAIRED WORK ABILITY [None]
  - JOB DISSATISFACTION [None]
  - SUICIDAL IDEATION [None]
